FAERS Safety Report 8238275-3 (Version None)
Quarter: 2012Q1

REPORT INFORMATION
  Report Type: 
  Country: None (occurrence: None)
  Receive Date: 20120327
  Receipt Date: 20120319
  Transmission Date: 20120608
  Serious: Yes (Disabling)
  Sender: FDA-Public Use
  Company Number: DK-TEVA-328683ISR

PATIENT
  Sex: Female

DRUGS (4)
  1. TAXOTERE [Suspect]
     Indication: BREAST CANCER
     Dates: start: 20101207
  2. EPIRUBICIN [Suspect]
     Indication: BREAST CANCER
     Dates: start: 20101207
  3. CYCLOPHOSPHAMIDE [Suspect]
     Indication: BREAST CANCER
     Dates: start: 20101207
  4. CLEMASTINE FUMARATE [Concomitant]
     Indication: BREAST CANCER
     Dates: start: 20101207

REACTIONS (4)
  - THROMBECTOMY [None]
  - THROMBOSIS [None]
  - PAIN IN EXTREMITY [None]
  - LEG AMPUTATION [None]
